FAERS Safety Report 9395901 (Version 1)
Quarter: 2013Q3

REPORT INFORMATION
  Report Type: Report from Study
  Country: US (occurrence: US)
  Receive Date: 20130711
  Receipt Date: 20130711
  Transmission Date: 20140515
  Serious: Yes (Other)
  Sender: FDA-Public Use
  Company Number: US-BRISTOL-MYERS SQUIBB COMPANY-19088830

PATIENT
  Age: 59 Year
  Sex: Female
  Weight: 76 kg

DRUGS (3)
  1. IPILIMUMAB [Suspect]
     Indication: MALIGNANT MELANOMA
     Dosage: LAST DOSE 29OCT2012
     Route: 042
     Dates: start: 20120827
  2. TAMOXIFEN [Concomitant]
  3. VENLAFAXINE HCL [Concomitant]

REACTIONS (2)
  - Vomiting [Recovering/Resolving]
  - Dehydration [Recovering/Resolving]
